FAERS Safety Report 25511072 (Version 1)
Quarter: 2025Q3

REPORT INFORMATION
  Report Type: Spontaneous
  Country: US (occurrence: US)
  Receive Date: 20250703
  Receipt Date: 20250703
  Transmission Date: 20251020
  Serious: No
  Sender: RADIUS PHARM
  Company Number: US-RADIUS HEALTH INC.-2024US006347

PATIENT
  Sex: Female

DRUGS (1)
  1. TYMLOS [Suspect]
     Active Substance: ABALOPARATIDE
     Indication: Product used for unknown indication
     Dates: end: 202412

REACTIONS (24)
  - Injection site haemorrhage [Unknown]
  - Vomiting [Unknown]
  - Headache [Unknown]
  - Intentional product misuse [Unknown]
  - Diarrhoea [Unknown]
  - Dizziness [Unknown]
  - Arthralgia [Unknown]
  - Muscular weakness [Unknown]
  - Depression [Unknown]
  - Muscle spasms [Unknown]
  - Malaise [Unknown]
  - Alanine aminotransferase increased [Not Recovered/Not Resolved]
  - Blood calcium increased [Not Recovered/Not Resolved]
  - Blood alkaline phosphatase increased [Not Recovered/Not Resolved]
  - Hiatus hernia [Unknown]
  - Condition aggravated [Unknown]
  - Stress [Unknown]
  - Anxiety [Unknown]
  - Injection site bruising [Unknown]
  - Fatigue [Unknown]
  - Nausea [Unknown]
  - Gastrooesophageal reflux disease [Unknown]
  - Gastrointestinal tract irritation [Unknown]
  - Illness [Unknown]
